FAERS Safety Report 4446903-3 (Version None)
Quarter: 2004Q3

REPORT INFORMATION
  Report Type: 
  Country: None (occurrence: None)
  Receive Date: 20040908
  Receipt Date: 20040818
  Transmission Date: 20050211
  Serious: Yes (Hospitalization)
  Sender: FDA-Public Use
  Company Number: 6010080

PATIENT
  Age: 57 Year
  Sex: Male

DRUGS (2)
  1. DETENSIEL (TABLETS) (BISOPROLOL) [Suspect]
     Indication: ESSENTIAL HYPERTENSION
     Dosage: 10 MG (10 MG, 1 IN 1 D) ORAL
     Route: 048
     Dates: start: 20000101, end: 20040401
  2. ENBREL [Suspect]
     Indication: POLYARTHRITIS
     Dosage: 25 MG SUBCUTANEOUS
     Route: 058
     Dates: start: 20000401, end: 20040401

REACTIONS (1)
  - RETROPERITONEAL FIBROSIS [None]
